FAERS Safety Report 10192619 (Version 1)
Quarter: 2014Q2

REPORT INFORMATION
  Report Type: Spontaneous
  Country: US (occurrence: US)
  Receive Date: 20140523
  Receipt Date: 20140523
  Transmission Date: 20141212
  Serious: Yes (Death, Hospitalization)
  Sender: FDA-Public Use
  Company Number: US-BAXTER-2014BAX025901

PATIENT
  Sex: Male

DRUGS (4)
  1. DIANEAL LOW CALCIUM [Suspect]
     Indication: RENAL FAILURE CHRONIC
     Route: 033
     Dates: start: 201012, end: 20140424
  2. DIANEAL LOW CALCIUM [Suspect]
     Indication: PERITONEAL DIALYSIS
  3. EXTRANEAL [Suspect]
     Indication: RENAL FAILURE CHRONIC
     Route: 033
     Dates: start: 201012, end: 20140424
  4. EXTRANEAL [Suspect]
     Indication: PERITONEAL DIALYSIS

REACTIONS (2)
  - Cardiac failure [Fatal]
  - Fluid overload [Recovered/Resolved]
